FAERS Safety Report 18524701 (Version 1)
Quarter: 2020Q4

REPORT INFORMATION
  Report Type: Report from Study
  Country: US (occurrence: US)
  Receive Date: 20201119
  Receipt Date: 20201119
  Transmission Date: 20210114
  Serious: Yes (Other)
  Sender: FDA-Public Use
  Company Number: US-SHIRE-US202024956

PATIENT
  Age: 50 Year
  Sex: Female

DRUGS (1)
  1. HUMAN IMMUNOGLOBULIN; HYALURONIDASE [Suspect]
     Active Substance: HUMAN IMMUNOGLOBULIN G\HYALURONIDASE RECOMBINANT HUMAN
     Indication: PRIMARY IMMUNODEFICIENCY SYNDROME
     Dosage: 40 GRAM
     Route: 065

REACTIONS (11)
  - Feeling hot [Unknown]
  - Peripheral swelling [Unknown]
  - Sinus operation [Unknown]
  - Inappropriate schedule of product administration [Unknown]
  - Burn infection [Unknown]
  - Fatigue [Unknown]
  - Sinusitis [Unknown]
  - Illness [Unknown]
  - Nasopharyngitis [Unknown]
  - Insurance issue [Unknown]
  - Pruritus [Unknown]

NARRATIVE: CASE EVENT DATE: 20200729
